FAERS Safety Report 17054052 (Version 1)
Quarter: 2019Q4

REPORT INFORMATION
  Report Type: Spontaneous
  Country: US (occurrence: US)
  Receive Date: 20191120
  Receipt Date: 20191120
  Transmission Date: 20200122
  Serious: Yes (Other)
  Sender: FDA-Public Use
  Company Number: US-PFIZER INC-2018330801

PATIENT
  Age: 72 Year
  Sex: Female
  Weight: 63.5 kg

DRUGS (3)
  1. GENOTROPIN MQ [Suspect]
     Active Substance: SOMATROPIN
     Indication: ADRENAL INSUFFICIENCY
  2. GENOTROPIN MQ [Suspect]
     Active Substance: SOMATROPIN
     Indication: PITUITARY-DEPENDENT CUSHING^S SYNDROME
     Dosage: 0.6 MG, ONCE A DAY
  3. GENOTROPIN MQ [Suspect]
     Active Substance: SOMATROPIN
     Indication: BRAIN NEOPLASM
     Dosage: 0.6 MG, DAILY

REACTIONS (3)
  - Off label use [Unknown]
  - Product use in unapproved indication [Unknown]
  - Pneumonia [Unknown]
